FAERS Safety Report 6272534-9 (Version None)
Quarter: 2009Q3

REPORT INFORMATION
  Report Type: 
  Country: None (occurrence: None)
  Receive Date: 20090717
  Receipt Date: 20090706
  Transmission Date: 20100115
  Serious: Yes (Other)
  Sender: FDA-Public Use
  Company Number: PHEH2009US05466

PATIENT
  Sex: Female

DRUGS (7)
  1. RECLAST [Suspect]
     Indication: OSTEOPOROSIS
     Dosage: 5 MG, ONCE YEARLY
     Dates: start: 20090413
  2. CALCIUM [Concomitant]
  3. VITAMINS [Concomitant]
  4. ATENOLOL [Concomitant]
     Indication: HYPERTENSION
     Dosage: 50 MG, QD
     Route: 048
  5. LIPITOR [Concomitant]
     Indication: HYPERLIPIDAEMIA
     Dosage: 40 MG, QD
     Route: 048
  6. LAMISIL                            /00992601/ [Concomitant]
     Indication: ONYCHOMYCOSIS
     Dosage: 250 MG, QD
     Route: 048
  7. ASPIRIN [Concomitant]
     Indication: PROPHYLAXIS
     Dosage: 325 MG, QD
     Route: 048

REACTIONS (3)
  - ARTHRALGIA [None]
  - JOINT EFFUSION [None]
  - JOINT SWELLING [None]
